FAERS Safety Report 11801154 (Version 1)
Quarter: 2015Q4

REPORT INFORMATION
  Report Type: Spontaneous
  Country: PL (occurrence: PL)
  Receive Date: 20151204
  Receipt Date: 20151204
  Transmission Date: 20160305
  Serious: Yes (Hospitalization)
  Sender: FDA-Public Use
  Company Number: PL-ELI_LILLY_AND_COMPANY-PL201512001102

PATIENT
  Age: 57 Year
  Sex: Female

DRUGS (2)
  1. METFORMIN [Concomitant]
     Active Substance: METFORMIN HYDROCHLORIDE
     Indication: DIABETES MELLITUS
     Dosage: 850 MG, TID
     Route: 065
  2. HUMAN INSULIN [Suspect]
     Active Substance: INSULIN HUMAN
     Indication: DIABETES MELLITUS
     Dosage: 16 IU, EACH EVENING
     Route: 065

REACTIONS (6)
  - Pyrexia [Unknown]
  - Injection site erythema [Unknown]
  - Drug administered at inappropriate site [Unknown]
  - Intentional product use issue [Unknown]
  - Injection site swelling [Unknown]
  - Hyperglycaemia [Unknown]
